FAERS Safety Report 9774449 (Version 1)
Quarter: 2013Q4

REPORT INFORMATION
  Report Type: Spontaneous
  Country: US (occurrence: None)
  Receive Date: 20131219
  Receipt Date: 20131219
  Transmission Date: 20140711
  Serious: No
  Sender: FDA-Public Use
  Company Number: None

PATIENT
  Sex: Female

DRUGS (1)
  1. COPAXONE 20MG TEVA [Suspect]
     Indication: MULTIPLE SCLEROSIS
     Dosage: 6 WEEKS AGO
     Dates: start: 20130911

REACTIONS (2)
  - Chest pain [None]
  - Chest discomfort [None]
